FAERS Safety Report 17849497 (Version 1)
Quarter: 2020Q2

REPORT INFORMATION
  Report Type: Spontaneous
  Country: US (occurrence: US)
  Receive Date: 20200601
  Receipt Date: 20200601
  Transmission Date: 20200714
  Serious: Yes (Hospitalization, Disabling)
  Sender: FDA-Public Use
  Company Number: None

PATIENT
  Age: 72 Year
  Sex: Male
  Weight: 62.1 kg

DRUGS (14)
  1. RAMIPRIL. [Concomitant]
     Active Substance: RAMIPRIL
  2. LEVEMIR [Concomitant]
     Active Substance: INSULIN DETEMIR
  3. CLOPIDOGREL [Concomitant]
     Active Substance: CLOPIDOGREL BISULFATE
  4. NICIN [Concomitant]
     Active Substance: NATAMYCIN
  5. METFORMIN [Concomitant]
     Active Substance: METFORMIN HYDROCHLORIDE
  6. GLIPZIDE [Concomitant]
     Active Substance: GLIPIZIDE
  7. AMLODIPINE [Concomitant]
     Active Substance: AMLODIPINE BESYLATE
  8. OCCAIVITE [Concomitant]
  9. ATORVASTATIN [Concomitant]
     Active Substance: ATORVASTATIN
  10. ASPIRINE [Concomitant]
     Active Substance: ASPIRIN
  11. STEGLATRO [Suspect]
     Active Substance: ERTUGLIFLOZIN PIDOLATE
     Indication: DIABETES MELLITUS
     Route: 048
     Dates: start: 20181002, end: 20200518
  12. HYDRALAZINE [Concomitant]
     Active Substance: HYDRALAZINE HYDROCHLORIDE
  13. ATENOLOL. [Concomitant]
     Active Substance: ATENOLOL
  14. 1 A DAY CENTREN [Concomitant]

REACTIONS (1)
  - Foot amputation [None]

NARRATIVE: CASE EVENT DATE: 20190131
